FAERS Safety Report 9290359 (Version 1)
Quarter: 2013Q2

REPORT INFORMATION
  Report Type: Spontaneous
  Country: US (occurrence: US)
  Receive Date: 20130515
  Receipt Date: 20130515
  Transmission Date: 20140414
  Serious: No
  Sender: FDA-Public Use
  Company Number: US-PFIZER INC-2013147062

PATIENT
  Age: 65 Year
  Sex: Female

DRUGS (2)
  1. NORVASC [Suspect]
     Dosage: UNK
  2. LISINOPRIL [Suspect]
     Dosage: UNK

REACTIONS (3)
  - Palpitations [Unknown]
  - Headache [Unknown]
  - Blood pressure inadequately controlled [Unknown]
